FAERS Safety Report 7270689-0 (Version None)
Quarter: 2011Q1

REPORT INFORMATION
  Report Type: 
  Country: None (occurrence: None)
  Receive Date: 20110202
  Receipt Date: 20110125
  Transmission Date: 20110831
  Serious: Yes (Hospitalization)
  Sender: FDA-Public Use
  Company Number: B0689418A

PATIENT
  Sex: Male

DRUGS (5)
  1. ADOAIR [Suspect]
     Indication: ASTHMA
     Route: 065
  2. SERETIDE [Suspect]
     Indication: ASTHMA
     Dosage: 500MCG PER DAY
     Route: 055
     Dates: start: 20101023, end: 20101115
  3. ASVERIN [Suspect]
     Dosage: 60MG PER DAY
     Route: 048
     Dates: start: 20101016, end: 20101104
  4. ANTOBRON [Suspect]
     Dosage: 45MG PER DAY
     Route: 048
     Dates: start: 20101016, end: 20101104
  5. CLARITHROMYCIN [Suspect]
     Dosage: 400MG PER DAY
     Route: 048
     Dates: start: 20101016

REACTIONS (2)
  - DYSURIA [None]
  - BENIGN PROSTATIC HYPERPLASIA [None]
